FAERS Safety Report 24962552 (Version 1)
Quarter: 2025Q1

REPORT INFORMATION
  Report Type: Spontaneous
  Country: US (occurrence: US)
  Receive Date: 20250212
  Receipt Date: 20250212
  Transmission Date: 20250409
  Serious: No
  Sender: JOHNSON AND JOHNSON
  Company Number: US-JNJFOC-20250123311

PATIENT
  Age: 63 Year
  Sex: Male
  Weight: 73.48 kg

DRUGS (15)
  1. OPSUMIT [Suspect]
     Active Substance: MACITENTAN
     Indication: Product used for unknown indication
     Route: 048
  2. TYVASO [Suspect]
     Active Substance: TREPROSTINIL
     Indication: Pulmonary arterial hypertension
     Route: 055
     Dates: start: 2024, end: 2024
  3. TYVASO [Suspect]
     Active Substance: TREPROSTINIL
     Route: 055
     Dates: start: 2024
  4. TYVASO [Suspect]
     Active Substance: TREPROSTINIL
     Route: 055
     Dates: start: 20241114
  5. TADALAFIL [Suspect]
     Active Substance: TADALAFIL
     Indication: Product used for unknown indication
     Route: 065
  6. SIMVASTATIN [Suspect]
     Active Substance: SIMVASTATIN
     Indication: Product used for unknown indication
     Route: 065
  7. IBUPROFEN [Concomitant]
     Active Substance: IBUPROFEN
  8. OMEPRAZOLE [Concomitant]
     Active Substance: OMEPRAZOLE
  9. MYCOPHENOLATE MOFETIL [Concomitant]
     Active Substance: MYCOPHENOLATE MOFETIL
  10. UBIDECARENONE [Concomitant]
     Active Substance: UBIDECARENONE
  11. ALBUTEROL SULFATE [Concomitant]
     Active Substance: ALBUTEROL SULFATE
  12. OFEV [Concomitant]
     Active Substance: NINTEDANIB
  13. ASPIRIN [Concomitant]
     Active Substance: ASPIRIN
  14. OXYGEN [Concomitant]
     Active Substance: OXYGEN
  15. OXYGEN [Concomitant]
     Active Substance: OXYGEN

REACTIONS (13)
  - Cough [Not Recovered/Not Resolved]
  - Seasonal allergy [Unknown]
  - Throat irritation [Not Recovered/Not Resolved]
  - Throat tightness [Unknown]
  - Productive cough [Not Recovered/Not Resolved]
  - Choking sensation [Unknown]
  - Fatigue [Unknown]
  - Dyspnoea [Unknown]
  - Platelet count decreased [Unknown]
  - Coagulation time prolonged [Unknown]
  - Skin injury [Unknown]
  - Inappropriate schedule of product administration [Unknown]
  - Dyspnoea [Not Recovered/Not Resolved]

NARRATIVE: CASE EVENT DATE: 20240101
